FAERS Safety Report 9973050 (Version 2)
Quarter: 2014Q1

REPORT INFORMATION
  Report Type: Report from Study
  Country: PR (occurrence: PR)
  Receive Date: 20140306
  Receipt Date: 20140306
  Transmission Date: 20141002
  Serious: No
  Sender: FDA-Public Use
  Company Number: PR-ABBVIE-13P-131-1144100-00

PATIENT
  Age: 51 Year
  Sex: Female
  Weight: 73.55 kg

DRUGS (10)
  1. HUMIRA [Suspect]
     Indication: RHEUMATOID ARTHRITIS
     Route: 058
     Dates: end: 2013
  2. HUMIRA [Suspect]
     Route: 058
     Dates: start: 2013
  3. METHOTREXATE [Concomitant]
     Indication: RHEUMATOID ARTHRITIS
     Route: 048
  4. LOSARTAN [Concomitant]
     Indication: HYPERTENSION
     Route: 048
  5. PLAQUENIL [Concomitant]
     Indication: PRODUCT USED FOR UNKNOWN INDICATION
     Route: 048
  6. SULINDAC [Concomitant]
     Indication: RHEUMATOID ARTHRITIS
     Route: 048
  7. SERTRALINE [Concomitant]
     Indication: DEPRESSION
     Route: 048
  8. CLONAZEPAM [Concomitant]
     Indication: ANXIETY
     Route: 048
  9. TEMAZEPAM [Concomitant]
     Indication: INSOMNIA
     Route: 048
  10. FOLIC ACID [Concomitant]
     Indication: RHEUMATOID ARTHRITIS
     Route: 048

REACTIONS (3)
  - Depression [Not Recovered/Not Resolved]
  - Bronchitis [Recovered/Resolved]
  - Asthma [Recovered/Resolved]
